FAERS Safety Report 16420818 (Version 1)
Quarter: 2019Q2

REPORT INFORMATION
  Report Type: Spontaneous
  Country: US (occurrence: US)
  Receive Date: 20190612
  Receipt Date: 20190612
  Transmission Date: 20190711
  Serious: Yes (Other)
  Sender: FDA-Public Use
  Company Number: US-JNJFOC-20190612102

PATIENT
  Age: 68 Year
  Sex: Female

DRUGS (1)
  1. IMBRUVICA [Suspect]
     Active Substance: IBRUTINIB
     Indication: PRODUCT USED FOR UNKNOWN INDICATION
     Route: 048
     Dates: start: 20190220, end: 20190509

REACTIONS (3)
  - Arrhythmia supraventricular [Recovering/Resolving]
  - Atrial fibrillation [Recovering/Resolving]
  - Ventricular arrhythmia [Recovering/Resolving]

NARRATIVE: CASE EVENT DATE: 201902
